FAERS Safety Report 6707452-2 (Version None)
Quarter: 2010Q2

REPORT INFORMATION
  Report Type: 
  Country: None (occurrence: None)
  Receive Date: 20100503
  Receipt Date: 20090324
  Transmission Date: 20101027
  Serious: No
  Sender: FDA-Public Use
  Company Number: US-ASTRAZENECA-2009UW07442

PATIENT
  Age: 830 Month
  Sex: Female

DRUGS (6)
  1. NEXIUM [Suspect]
     Indication: DYSPEPSIA
     Route: 048
     Dates: start: 20090101
  2. AMLODIPINE [Concomitant]
     Route: 048
  3. SIMVASTATIN [Concomitant]
     Route: 048
  4. OXYBUTYNIN [Concomitant]
     Route: 048
  5. VITAMIN D [Concomitant]
     Route: 048
  6. IRON [Concomitant]

REACTIONS (3)
  - CHILLS [None]
  - COUGH [None]
  - GASTROOESOPHAGEAL REFLUX DISEASE [None]
